FAERS Safety Report 6751589-9 (Version None)
Quarter: 2010Q2

REPORT INFORMATION
  Report Type: 
  Country: None (occurrence: None)
  Receive Date: 20100602
  Receipt Date: 20100528
  Transmission Date: 20101027
  Serious: Yes (Life-Threatening, Hospitalization)
  Sender: FDA-Public Use
  Company Number: ES-ROCHE-706222

PATIENT
  Sex: Female
  Weight: 70 kg

DRUGS (9)
  1. TRASTUZUMAB [Suspect]
     Indication: BREAST CANCER
     Dosage: FORM:VIAL;LAST DOSE BEFRE EVENT:3 SEP 09
     Route: 042
     Dates: start: 20090520, end: 20090903
  2. DOCETAXEL [Suspect]
     Indication: BREAST CANCER
     Dosage: LAST DOSE BEFRE EVENT:3 SEP 09;FORM:VIAL
     Route: 042
     Dates: start: 20090520, end: 20090903
  3. CARBOPLATIN [Suspect]
     Indication: BREAST CANCER
     Dosage: FORM:VIAL;LAST DOSE BEFRE EVENT:3 SEP 09
     Route: 042
     Dates: start: 20090520, end: 20090903
  4. ALPRAZOLAM [Concomitant]
     Dates: start: 20090602
  5. NAPROXENO [Concomitant]
     Dates: start: 20090903
  6. CANDESARTAN [Concomitant]
  7. ASPIRIN [Concomitant]
     Dates: end: 20100304
  8. ESPIRONOLACTONA [Concomitant]
  9. DIGOXIN [Concomitant]

REACTIONS (1)
  - ISCHAEMIC STROKE [None]
